FAERS Safety Report 6320299 (Version 5)
Quarter: 2020Q3

REPORT INFORMATION
  Report Type: Report from Study
  Country: US (occurrence: US)
  Receive Date: 20070525
  Receipt Date: 20080229
  Transmission Date: 20201104
  Serious: Yes (Hospitalization, Other)
  Sender: FDA-Public Use
  Company Number: US-JNJFOC-20070502576

PATIENT
  Age: 37 Year
  Sex: Male
  Weight: 51.71 kg

DRUGS (22)
  1. RALTEGRAVIR POTASSIUM [Suspect]
     Active Substance: RALTEGRAVIR POTASSIUM
     Indication: HIV INFECTION
     Route: 048
  2. MARINOL [Concomitant]
     Active Substance: DRONABINOL
     Indication: CACHEXIA
     Route: 048
  3. PEPTO?BISMOL [Concomitant]
     Active Substance: BISMUTH SUBSALICYLATE
     Indication: DIARRHOEA
     Route: 065
  4. PREZISTA [Suspect]
     Active Substance: DARUNAVIR ETHANOLATE
     Indication: HIV INFECTION
     Route: 048
  5. RITONAVIR. [Suspect]
     Active Substance: RITONAVIR
     Route: 048
  6. VALCYTE [Concomitant]
     Active Substance: VALGANCICLOVIR HYDROCHLORIDE
     Indication: CYTOMEGALOVIRUS INFECTION
     Route: 048
  7. VALCYTE [Concomitant]
     Active Substance: VALGANCICLOVIR HYDROCHLORIDE
     Indication: ANTIVIRAL PROPHYLAXIS
     Route: 048
  8. PROBENECID. [Concomitant]
     Active Substance: PROBENECID
     Route: 048
  9. ALTERNAGEL [Concomitant]
     Active Substance: ALUMINUM HYDROXIDE
     Indication: DIARRHOEA
     Route: 065
  10. RITONAVIR. [Suspect]
     Active Substance: RITONAVIR
     Indication: HIV INFECTION
     Route: 048
  11. VISTIDE [Concomitant]
     Active Substance: CIDOFOVIR
     Indication: CYTOMEGALOVIRUS INFECTION
     Route: 042
  12. PROBENECID. [Concomitant]
     Active Substance: PROBENECID
     Route: 048
  13. ETRAVIRINE [Suspect]
     Active Substance: ETRAVIRINE
     Indication: HIV INFECTION
     Route: 048
  14. VISTIDE [Concomitant]
     Active Substance: CIDOFOVIR
     Route: 042
  15. OPIUM. [Concomitant]
     Active Substance: OPIUM
     Indication: DIARRHOEA
     Route: 065
  16. MARINOL [Concomitant]
     Active Substance: DRONABINOL
     Indication: WEIGHT INCREASED
     Route: 048
  17. ZOVIRAX [Concomitant]
     Active Substance: ACYCLOVIR
     Indication: HERPES SIMPLEX
     Route: 061
  18. AMITRIPTYLINE [Concomitant]
     Active Substance: AMITRIPTYLINE
     Indication: DEPRESSION
     Route: 048
  19. LUNESTA [Concomitant]
     Active Substance: ESZOPICLONE
     Indication: INSOMNIA
     Route: 048
  20. ETRAVIRINE [Suspect]
     Active Substance: ETRAVIRINE
     Route: 048
  21. TRUVADA [Suspect]
     Active Substance: EMTRICITABINE\TENOFOVIR DISOPROXIL FUMARATE
     Indication: HIV INFECTION
     Route: 048
  22. FAMVIR [Concomitant]
     Active Substance: FAMCICLOVIR
     Indication: HERPES SIMPLEX
     Route: 048

REACTIONS (1)
  - Mycobacterium avium complex immune restoration disease [Not Recovered/Not Resolved]

NARRATIVE: CASE EVENT DATE: 20070505
